FAERS Safety Report 22269580 (Version 4)
Quarter: 2024Q3

REPORT INFORMATION
  Report Type: Report from Study
  Country: GR (occurrence: GR)
  Receive Date: 20230501
  Receipt Date: 20240802
  Transmission Date: 20241017
  Serious: Yes (Death, Life-Threatening, Hospitalization, Other)
  Sender: MYLAN
  Company Number: GR-ABBVIE-4727772

PATIENT
  Age: 87 Year
  Sex: Male
  Weight: 60 kg

DRUGS (9)
  1. AZACITIDINE [Suspect]
     Active Substance: AZACITIDINE
     Indication: Acute myeloid leukaemia
     Dosage: 120 MILLIGRAM, QD (FOR 7 DAYS)
     Route: 058
     Dates: start: 20220412, end: 202204
  2. AZACITIDINE [Suspect]
     Active Substance: AZACITIDINE
     Dosage: 120 MILLIGRAM, QD (DAILY FOR 28 DAYS)
     Route: 058
     Dates: start: 20220426
  3. AZACITIDINE [Suspect]
     Active Substance: AZACITIDINE
     Dosage: 120 MILLIGRAM, DAILY FOR 7 DAYS/28 DAYS
     Route: 058
     Dates: start: 20220926, end: 20230412
  4. VENETOCLAX [Suspect]
     Active Substance: VENETOCLAX
     Indication: Acute myeloid leukaemia
     Dosage: 200 MILLIGRAM, QD
     Route: 048
     Dates: start: 20220926, end: 20230412
  5. CIPROFLOXACIN [Concomitant]
     Active Substance: CIPROFLOXACIN
     Indication: Febrile neutropenia
     Dosage: 500 MILLIGRAM, BID
     Route: 048
  6. CIPROFLOXACIN [Concomitant]
     Active Substance: CIPROFLOXACIN
     Indication: Septic shock
  7. AMIKACIN [Concomitant]
     Active Substance: AMIKACIN
     Indication: Dysuria
     Dosage: 500 MILLIGRAM
     Route: 042
     Dates: start: 20230407, end: 20230407
  8. METRONIDAZOLE [Concomitant]
     Active Substance: METRONIDAZOLE
     Indication: Febrile neutropenia
     Dosage: 500 MILLIGRAM, TID
     Route: 048
     Dates: start: 20230322, end: 20230327
  9. METRONIDAZOLE [Concomitant]
     Active Substance: METRONIDAZOLE
     Indication: Septic shock

REACTIONS (5)
  - Death [Fatal]
  - Neutropenia [Recovered/Resolved]
  - Septic shock [Recovered/Resolved]
  - Febrile neutropenia [Recovered/Resolved]
  - Dysuria [Recovered/Resolved]

NARRATIVE: CASE EVENT DATE: 20230322
